FAERS Safety Report 10544210 (Version 2)
Quarter: 2014Q4

REPORT INFORMATION
  Report Type: Spontaneous
  Country: IT (occurrence: None)
  Receive Date: 20141023
  Receipt Date: 20141125
  Transmission Date: 20150529
  Serious: Yes (Life-Threatening)
  Sender: FDA-Public Use
  Company Number: FK201404349

PATIENT
  Age: 74 Year
  Sex: Female
  Weight: 90 kg

DRUGS (1)
  1. OXALIPLATIN (MANUFACTURER UNKNOWN) (OXALIPLATIN) (OXALIPLATIN) [Suspect]
     Active Substance: OXALIPLATIN
     Indication: ADENOCARCINOMA OF COLON
     Dosage: TOTAL, INTRAVENOUS DRIP
     Route: 041
     Dates: start: 20140910, end: 20140910

REACTIONS (4)
  - Hyperpyrexia [None]
  - Renal failure [None]
  - Nausea [None]
  - Chills [None]

NARRATIVE: CASE EVENT DATE: 20140910
